FAERS Safety Report 13862844 (Version 3)
Quarter: 2018Q1

REPORT INFORMATION
  Report Type: Report from Study
  Country: CA (occurrence: CA)
  Receive Date: 20170814
  Receipt Date: 20180201
  Transmission Date: 20180508
  Serious: Yes (Death, Hospitalization)
  Sender: FDA-Public Use
  Company Number: CA-ROCHE-1820518

PATIENT
  Sex: Male

DRUGS (18)
  1. ESBRIET [Suspect]
     Active Substance: PIRFENIDONE
     Dosage: 534 - 534 - 801 MG
     Route: 048
     Dates: start: 20160920
  2. TELMISARTAN. [Concomitant]
     Active Substance: TELMISARTAN
  3. ESBRIET [Suspect]
     Active Substance: PIRFENIDONE
     Route: 048
     Dates: start: 20160825
  4. TYLENOL ARTHRITIS PAIN [Concomitant]
     Active Substance: ACETAMINOPHEN
  5. TECTA [Concomitant]
     Active Substance: PANTOPRAZOLE MAGNESIUM
  6. LASIX [Concomitant]
     Active Substance: FUROSEMIDE
  7. OXYGEN. [Concomitant]
     Active Substance: OXYGEN
     Dosage: 2L/MIN
     Route: 065
  8. ESBRIET [Suspect]
     Active Substance: PIRFENIDONE
     Route: 048
     Dates: start: 20161019
  9. ASPRIN [Concomitant]
     Active Substance: ASPIRIN
  10. ESBRIET [Suspect]
     Active Substance: PIRFENIDONE
     Route: 048
     Dates: start: 20160823
  11. ESBRIET [Suspect]
     Active Substance: PIRFENIDONE
     Route: 048
     Dates: start: 20160816
  12. ESBRIET [Suspect]
     Active Substance: PIRFENIDONE
     Route: 048
     Dates: start: 2017
  13. LODIPINE [Concomitant]
  14. VITAMIN E [Concomitant]
     Active Substance: .ALPHA.-TOCOPHEROL
  15. ESBRIET [Suspect]
     Active Substance: PIRFENIDONE
     Dosage: 534 - 801 - 801 MG
     Route: 048
     Dates: start: 20161018
  16. ESBRIET [Suspect]
     Active Substance: PIRFENIDONE
     Indication: IDIOPATHIC PULMONARY FIBROSIS
     Route: 048
     Dates: start: 20160809
  17. LIPITOR [Concomitant]
     Active Substance: ATORVASTATIN CALCIUM
  18. METOPROLOL. [Concomitant]
     Active Substance: METOPROLOL

REACTIONS (6)
  - Skin discolouration [Not Recovered/Not Resolved]
  - Photosensitivity reaction [Recovering/Resolving]
  - Respiratory tract infection [Unknown]
  - Headache [Recovered/Resolved]
  - Pruritus [Recovered/Resolved]
  - Pulmonary function test abnormal [Unknown]

NARRATIVE: CASE EVENT DATE: 2017
